FAERS Safety Report 16913872 (Version 1)
Quarter: 2019Q4

REPORT INFORMATION
  Report Type: Spontaneous
  Country: FR (occurrence: FR)
  Receive Date: 20191014
  Receipt Date: 20191014
  Transmission Date: 20200122
  Serious: Yes (Congenital Anomaly)
  Sender: FDA-Public Use
  Company Number: FR-PFIZER INC-2019435799

PATIENT
  Sex: Female
  Weight: 2.67 kg

DRUGS (5)
  1. XANAX [Suspect]
     Active Substance: ALPRAZOLAM
     Indication: ANXIETY
     Dosage: 0.25 MG, 1X/DAY
     Route: 064
     Dates: start: 20171228, end: 20180912
  2. AVLOCARDYL [PROPRANOLOL] [Suspect]
     Active Substance: PROPRANOLOL HYDROCHLORIDE
     Indication: HYPERTENSION
     Dosage: 40 MG, 1X/DAY
     Route: 064
     Dates: start: 20171228, end: 20180415
  3. LAROXYL [Suspect]
     Active Substance: AMITRIPTYLINE HYDROCHLORIDE
     Indication: DRUG WITHDRAWAL MAINTENANCE THERAPY
     Dosage: 40 MG, 1X/DAY
     Route: 064
     Dates: start: 20171228, end: 20180912
  4. METHADONE [Suspect]
     Active Substance: METHADONE HYDROCHLORIDE
     Indication: DRUG WITHDRAWAL MAINTENANCE THERAPY
     Dosage: 100 MG, 1X/DAY
     Route: 064
     Dates: start: 20171228, end: 20180912
  5. BACLOFENE [Suspect]
     Active Substance: BACLOFEN
     Indication: PROPHYLAXIS AGAINST ALCOHOLIC WITHDRAWAL SYNDROME
     Dosage: 15 MG, 1X/DAY
     Route: 064
     Dates: start: 20171228, end: 20180912

REACTIONS (2)
  - Maternal exposure during pregnancy [Recovered/Resolved with Sequelae]
  - Congenital skin dimples [Recovered/Resolved with Sequelae]

NARRATIVE: CASE EVENT DATE: 20180912
